FAERS Safety Report 6434875-1 (Version None)
Quarter: 2009Q4

REPORT INFORMATION
  Report Type: 
  Country: None (occurrence: None)
  Receive Date: 20091109
  Receipt Date: 20091109
  Transmission Date: 20100525
  Serious: Yes (Other)
  Sender: FDA-Public Use
  Company Number: None

PATIENT
  Age: 42 Year
  Sex: Male
  Weight: 77.1115 kg

DRUGS (2)
  1. CIPRO [Suspect]
     Indication: DIARRHOEA
     Dosage: 1 TABLET BID PO
     Route: 048
     Dates: start: 20091013, end: 20091027
  2. FLAGYL [Suspect]
     Indication: DIARRHOEA
     Dosage: 1 TABLET TID PO
     Route: 048
     Dates: start: 20091013, end: 20091027

REACTIONS (2)
  - MUSCULOSKELETAL PAIN [None]
  - TENDONITIS [None]
